FAERS Safety Report 6692613-1 (Version None)
Quarter: 2010Q2

REPORT INFORMATION
  Report Type: 
  Country: None (occurrence: None)
  Receive Date: 20100422
  Receipt Date: 20100415
  Transmission Date: 20101027
  Serious: Yes (Other)
  Sender: FDA-Public Use
  Company Number: DE-PFIZER INC-2010034922

PATIENT
  Age: 27 Year
  Sex: Female
  Weight: 54 kg

DRUGS (1)
  1. SAYANA [Suspect]
     Dosage: 1 DF, UNK
     Dates: start: 20100105, end: 20100105

REACTIONS (2)
  - INJECTION SITE HAEMATOMA [None]
  - INJECTION SITE NECROSIS [None]
